FAERS Safety Report 19641473 (Version 1)
Quarter: 2021Q3

REPORT INFORMATION
  Report Type: Spontaneous
  Country: US (occurrence: US)
  Receive Date: 20210731
  Receipt Date: 20210731
  Transmission Date: 20211014
  Serious: No
  Sender: FDA-Public Use
  Company Number: US-SA-2021SA247685

PATIENT
  Sex: Female

DRUGS (13)
  1. TRELEGY ELLIPTA [Concomitant]
     Active Substance: FLUTICASONE FUROATE\UMECLIDINIUM BROMIDE\VILANTEROL TRIFENATATE
  2. VITAMINS NOS [Concomitant]
     Active Substance: VITAMINS
  3. OMEPRAZOLE. [Concomitant]
     Active Substance: OMEPRAZOLE
  4. BUDESONIDE. [Concomitant]
     Active Substance: BUDESONIDE
  5. DUPIXENT [Suspect]
     Active Substance: DUPILUMAB
     Indication: ASTHMA
     Dosage: 300 MG, QOW
     Route: 058
     Dates: start: 202105
  6. COMBIVENT RESPIMAT [Concomitant]
     Active Substance: ALBUTEROL SULFATE\IPRATROPIUM BROMIDE
  7. AZELASTINE. [Concomitant]
     Active Substance: AZELASTINE HYDROCHLORIDE
  8. VITAMIN C [Concomitant]
     Active Substance: ASCORBIC ACID
  9. LIPITOR [Concomitant]
     Active Substance: ATORVASTATIN CALCIUM
  10. PREMPRO [Concomitant]
     Active Substance: ESTROGENS, CONJUGATED\MEDROXYPROGESTERONE ACETATE
  11. ATORVASTATIN [Concomitant]
     Active Substance: ATORVASTATIN
  12. CALCIUM [Concomitant]
     Active Substance: CALCIUM
  13. ZYRTEC [Concomitant]
     Active Substance: CETIRIZINE HYDROCHLORIDE

REACTIONS (8)
  - Arthralgia [Unknown]
  - Chest discomfort [Unknown]
  - Injection site reaction [Unknown]
  - Skin atrophy [Unknown]
  - Abdominal discomfort [Unknown]
  - Myalgia [Unknown]
  - Pain [Unknown]
  - Injection site erythema [Unknown]
